FAERS Safety Report 7068694-2 (Version None)
Quarter: 2010Q4

REPORT INFORMATION
  Report Type: 
  Country: None (occurrence: None)
  Receive Date: 20101028
  Receipt Date: 20101018
  Transmission Date: 20110411
  Serious: Yes (Death, Hospitalization, Other)
  Sender: FDA-Public Use
  Company Number: IE-PFIZER INC-2009190618

PATIENT
  Age: 84 Year
  Sex: Female

DRUGS (4)
  1. LIPITOR [Suspect]
     Indication: ISCHAEMIC HEART DISEASE PROPHYLAXIS
     Dosage: 10 MG, UNK
     Route: 048
     Dates: start: 20080101, end: 20090227
  2. LIPITOR [Suspect]
     Indication: CARDIAC DISCOMFORT
  3. LIPITOR [Suspect]
     Indication: BLOOD CHOLESTEROL
  4. FUCIDINE CAP [Suspect]
     Indication: POSTOPERATIVE WOUND INFECTION
     Dosage: 500 MG, 3X/DAY
     Route: 048
     Dates: start: 20090218, end: 20090311

REACTIONS (6)
  - ARTHRALGIA [None]
  - DRUG INTERACTION [None]
  - POSTOPERATIVE WOUND INFECTION [None]
  - RENAL FAILURE [None]
  - RHABDOMYOLYSIS [None]
  - WOUND HAEMORRHAGE [None]
